FAERS Safety Report 5981622-3 (Version None)
Quarter: 2008Q4

REPORT INFORMATION
  Report Type: 
  Country: None (occurrence: None)
  Receive Date: 20081205
  Receipt Date: 20081120
  Transmission Date: 20090506
  Serious: Yes (Hospitalization)
  Sender: FDA-Public Use
  Company Number: FR-BRISTOL-MYERS SQUIBB COMPANY-14136337

PATIENT
  Age: 33 Year
  Sex: Male

DRUGS (5)
  1. EFAVIRENZ TABS [Suspect]
     Indication: HIV INFECTION
     Route: 048
  2. PREZISTA [Suspect]
     Indication: HIV INFECTION
     Route: 048
  3. NORVIR [Suspect]
     Indication: HIV INFECTION
     Dosage: NORVIR CAPS.
     Route: 048
  4. TRUVADA [Suspect]
     Indication: HIV INFECTION
     Route: 048
  5. ISENTRESS [Suspect]
     Indication: HIV INFECTION
     Route: 048

REACTIONS (1)
  - HAEMATOMA [None]
